FAERS Safety Report 4821644-9 (Version None)
Quarter: 2005Q4

REPORT INFORMATION
  Report Type: 
  Country: None (occurrence: None)
  Receive Date: 20051107
  Receipt Date: 20050712
  Transmission Date: 20060501
  Serious: Yes (Life-Threatening, Hospitalization)
  Sender: FDA-Public Use
  Company Number: DE-MERCK-0507DEU00088

PATIENT
  Age: 67 Year
  Sex: Female
  Weight: 70 kg

DRUGS (11)
  1. ZETIA [Suspect]
     Indication: DYSLIPIDAEMIA
     Route: 048
     Dates: start: 20040101, end: 20050708
  2. ASPIRIN [Concomitant]
     Route: 065
     Dates: start: 20040101
  3. CLOPIDOGREL BISULFATE [Concomitant]
     Route: 065
     Dates: start: 20040101
  4. BISOPROLOL [Concomitant]
     Route: 065
     Dates: start: 20040101
  5. VALSARTAN [Concomitant]
     Route: 065
     Dates: start: 20040101
  6. TORSEMIDE [Concomitant]
     Route: 065
     Dates: start: 20040101
  7. NITRENDIPINE [Concomitant]
     Route: 065
     Dates: start: 20040101
  8. MOXONIDINE [Concomitant]
     Route: 065
  9. ESOMEPRAZOLE MAGNESIUM [Concomitant]
     Route: 065
  10. INSULIN [Concomitant]
     Route: 065
     Dates: start: 20040101
  11. PANTOPRAZOLE SODIUM [Concomitant]
     Route: 065
     Dates: start: 20040101

REACTIONS (4)
  - GASTROINTESTINAL INFECTION [None]
  - RENAL FAILURE [None]
  - RESPIRATORY TRACT INFECTION [None]
  - RHABDOMYOLYSIS [None]
